FAERS Safety Report 11864131 (Version 4)
Quarter: 2018Q2

REPORT INFORMATION
  Report Type: Report from Study
  Country: DE (occurrence: DE)
  Receive Date: 20151223
  Receipt Date: 20180531
  Transmission Date: 20180711
  Serious: Yes (Death)
  Sender: FDA-Public Use
  Company Number: DE-TEVA-619395ACC

PATIENT

DRUGS (4)
  1. OBINUTUZUMAB. [Suspect]
     Active Substance: OBINUTUZUMAB
     Indication: CHRONIC LYMPHOCYTIC LEUKAEMIA
     Dosage: 25 MG, CYCLIC, ON D1 OF C1 EVERY 28 DAYS
     Route: 042
  2. OBINUTUZUMAB. [Suspect]
     Active Substance: OBINUTUZUMAB
     Dosage: 1000 MG, CYCLIC, ON D8 AND D15 OF C1 AND D1 C2-6 EVERY 28 DAYS
     Route: 042
  3. OBINUTUZUMAB. [Suspect]
     Active Substance: OBINUTUZUMAB
     Dosage: 975 MG, CYCLIC, ON D2 OF C1 EVERY 28 DAYS
     Route: 042
  4. BENDAMUSTINE HYDROCHLORIDE. [Suspect]
     Active Substance: BENDAMUSTINE HYDROCHLORIDE
     Indication: CHRONIC LYMPHOCYTIC LEUKAEMIA
     Dosage: CYCLIC, ON DAY 1 AND DAY 2 EVERY 28 DAYS
     Route: 042

REACTIONS (1)
  - Sudden death [Fatal]
